FAERS Safety Report 4666539-9 (Version None)
Quarter: 2005Q2

REPORT INFORMATION
  Report Type: 
  Country: None (occurrence: None)
  Receive Date: 20050518
  Receipt Date: 20050506
  Transmission Date: 20051028
  Serious: Yes (Hospitalization, Other)
  Sender: FDA-Public Use
  Company Number: 2005071755

PATIENT
  Sex: Male
  Weight: 76.2043 kg

DRUGS (5)
  1. CELEBREX [Suspect]
     Indication: ARTHRITIS
     Dosage: 200 MG (200 MG, 1 IN 1 D), ORAL
     Route: 048
  2. BEXTRA [Suspect]
     Indication: ARTHRITIS
     Dosage: (1 IN 1 D), ORAL
     Route: 048
     Dates: start: 20040101
  3. LIPITOR [Concomitant]
  4. MAVIK [Concomitant]
  5. ASPIRIN [Concomitant]

REACTIONS (5)
  - AORTIC ANEURYSM [None]
  - CAROTID ARTERY OCCLUSION [None]
  - DRUG EFFECT DECREASED [None]
  - SELF-MEDICATION [None]
  - TREATMENT NONCOMPLIANCE [None]
